FAERS Safety Report 8390780-5 (Version None)
Quarter: 2012Q2

REPORT INFORMATION
  Report Type: 
  Country: None (occurrence: None)
  Receive Date: 20120529
  Receipt Date: 20120524
  Transmission Date: 20120825
  Serious: Yes (Hospitalization)
  Sender: FDA-Public Use
  Company Number: ES-PFIZER INC-2012104217

PATIENT
  Age: 55 Year
  Sex: Female

DRUGS (11)
  1. ROMILAR [Concomitant]
     Dosage: UNK
  2. ALMAX FORTE [Concomitant]
     Dosage: UNK
  3. ALPRAZOLAM [Suspect]
     Indication: ANXIETY
     Dosage: 1 MG, 1X/DAY
     Route: 048
     Dates: start: 20080701, end: 20110612
  4. MORPHINE SULFATE [Interacting]
     Indication: PAIN
     Dosage: 10 MG, UNK
     Route: 048
     Dates: end: 20110612
  5. IBUPROFEN [Concomitant]
     Indication: PAIN
     Dosage: 600 MG, 1X/DAY
     Route: 048
  6. CELEBREX [Concomitant]
     Indication: PAIN
     Dosage: 200 MG, 1X/DAY
     Route: 048
     Dates: start: 20100201, end: 20110612
  7. OMEPRAZOLE [Concomitant]
     Indication: PROPHYLAXIS
     Dosage: 20 MG, 1X/DAY
     Route: 048
     Dates: start: 20100201, end: 20110612
  8. BUDESONIDE [Concomitant]
     Dosage: UNK
  9. OPTOVITE B12 [Concomitant]
     Dosage: UNK
  10. ACFOL [Concomitant]
     Dosage: UNK
  11. DURAGESIC-100 [Interacting]
     Indication: PAIN
     Dosage: 50 UG, UNK
     Route: 062
     Dates: end: 20110613

REACTIONS (6)
  - BLOOD PH DECREASED [None]
  - RESPIRATORY DEPRESSION [None]
  - BLOOD CREATININE INCREASED [None]
  - DEPRESSED LEVEL OF CONSCIOUSNESS [None]
  - DRUG INTERACTION [None]
  - BLOOD POTASSIUM DECREASED [None]
